FAERS Safety Report 7534957-7 (Version None)
Quarter: 2011Q2

REPORT INFORMATION
  Report Type: 
  Country: None (occurrence: None)
  Receive Date: 20110609
  Receipt Date: 20090130
  Transmission Date: 20111010
  Serious: Yes (Hospitalization, Other)
  Sender: FDA-Public Use
  Company Number: PHHY2009US02664

PATIENT
  Sex: Female

DRUGS (1)
  1. FEMARA [Suspect]
     Indication: BREAST CANCER
     Dosage: 2.5 MG, QD
     Route: 048
     Dates: start: 20081007

REACTIONS (16)
  - INTERVERTEBRAL DISC DEGENERATION [None]
  - INTERVERTEBRAL DISC PROTRUSION [None]
  - MUSCULAR WEAKNESS [None]
  - ARTHROPATHY [None]
  - HYPERTROPHY [None]
  - WHEEZING [None]
  - COUGH [None]
  - FALL [None]
  - LIGAMENT DISORDER [None]
  - PAIN [None]
  - PAIN IN EXTREMITY [None]
  - CHILLS [None]
  - LUMBAR SPINAL STENOSIS [None]
  - LUMBAR SPINE FLATTENING [None]
  - DYSPNOEA [None]
  - PYREXIA [None]
